FAERS Safety Report 6101984-6 (Version None)
Quarter: 2009Q1

REPORT INFORMATION
  Report Type: 
  Country: None (occurrence: None)
  Receive Date: 20090304
  Receipt Date: 20090225
  Transmission Date: 20090719
  Serious: Yes (Hospitalization)
  Sender: FDA-Public Use
  Company Number: GR-ABBOTT-09P-066-0559153-00

PATIENT
  Sex: Male
  Weight: 63 kg

DRUGS (9)
  1. ZEMPLAR [Suspect]
     Indication: HYPERPARATHYROIDISM SECONDARY
     Route: 042
     Dates: start: 20070423
  2. DILATREND [Concomitant]
     Indication: DRUG USE FOR UNKNOWN INDICATION
  3. TRIATEC [Concomitant]
     Indication: DRUG USE FOR UNKNOWN INDICATION
  4. SUPERAMIN [Concomitant]
     Indication: DRUG USE FOR UNKNOWN INDICATION
  5. ARANESP [Concomitant]
     Indication: DRUG USE FOR UNKNOWN INDICATION
  6. CALCIORAL [Concomitant]
     Indication: DRUG USE FOR UNKNOWN INDICATION
  7. FERROVIN [Concomitant]
     Indication: DRUG USE FOR UNKNOWN INDICATION
  8. NEUROBION [Concomitant]
     Indication: DRUG USE FOR UNKNOWN INDICATION
  9. RENAGEL [Concomitant]
     Indication: DRUG USE FOR UNKNOWN INDICATION

REACTIONS (3)
  - CHOLANGITIS [None]
  - JAUNDICE [None]
  - PYREXIA [None]
